FAERS Safety Report 10149027 (Version 1)
Quarter: 2014Q2

REPORT INFORMATION
  Report Type: Spontaneous
  Country: US (occurrence: None)
  Receive Date: 20140430
  Receipt Date: 20140430
  Transmission Date: 20141212
  Serious: Yes (Hospitalization)
  Sender: FDA-Public Use
  Company Number: None

PATIENT
  Sex: Male

DRUGS (1)
  1. HYDROMORPHONE [Suspect]
     Indication: PAIN
     Route: 042
     Dates: start: 20140401, end: 20140402

REACTIONS (4)
  - Confusional state [None]
  - Sedation [None]
  - Mental status changes [None]
  - Depressed level of consciousness [None]
